FAERS Safety Report 5981756-3 (Version None)
Quarter: 2008Q4

REPORT INFORMATION
  Report Type: 
  Country: None (occurrence: None)
  Receive Date: 20081205
  Receipt Date: 20081201
  Transmission Date: 20090506
  Serious: Yes (Disabling)
  Sender: FDA-Public Use
  Company Number: US-KINGPHARMUSA00001-K200801355

PATIENT
  Age: 56 Year
  Sex: Male

DRUGS (1)
  1. ALTACE [Suspect]
     Dosage: UNK
     Route: 048
     Dates: start: 20000101, end: 20081120

REACTIONS (4)
  - HEPATITIS [None]
  - IMPAIRED WORK ABILITY [None]
  - JAUNDICE [None]
  - PRURITUS [None]
